FAERS Safety Report 7790404-1 (Version None)
Quarter: 2011Q3

REPORT INFORMATION
  Report Type: 
  Country: None (occurrence: None)
  Receive Date: 20110930
  Receipt Date: 20110921
  Transmission Date: 20111222
  Serious: Yes (Other)
  Sender: FDA-Public Use
  Company Number: US-JNJFOC-20110909958

PATIENT
  Sex: Female
  Weight: 53.98 kg

DRUGS (1)
  1. REMICADE [Suspect]
     Indication: CROHN'S DISEASE
     Route: 042
     Dates: start: 20110301, end: 20110804

REACTIONS (11)
  - DRUG INEFFECTIVE [None]
  - HERPES VIRUS INFECTION [None]
  - ASTHMA [None]
  - ANAEMIA [None]
  - OROPHARYNGEAL PAIN [None]
  - ABDOMINAL PAIN [None]
  - COUGH [None]
  - NIGHT SWEATS [None]
  - LOWER RESPIRATORY TRACT INFECTION BACTERIAL [None]
  - URINARY TRACT INFECTION [None]
  - MUSCLE SPASMS [None]
